FAERS Safety Report 20483605 (Version 2)
Quarter: 2022Q1

REPORT INFORMATION
  Report Type: Spontaneous
  Country: US (occurrence: US)
  Receive Date: 20220217
  Receipt Date: 20220221
  Transmission Date: 20220423
  Serious: Yes (Hospitalization)
  Sender: FDA-Public Use
  Company Number: US-Global Blood Therapeutics Inc-US-GBT-21-04742

PATIENT
  Age: 19 Year
  Sex: Female

DRUGS (3)
  1. OXBRYTA [Suspect]
     Active Substance: VOXELOTOR
     Indication: Product used for unknown indication
     Dates: end: 20211216
  2. OXBRYTA [Suspect]
     Active Substance: VOXELOTOR
     Dates: end: 202201
  3. OXBRYTA [Suspect]
     Active Substance: VOXELOTOR
     Dates: start: 202201

REACTIONS (4)
  - Sickle cell anaemia with crisis [Unknown]
  - Full blood count abnormal [Unknown]
  - SARS-CoV-2 test positive [Unknown]
  - Off label use [Unknown]

NARRATIVE: CASE EVENT DATE: 20211216
